FAERS Safety Report 7289874-7 (Version None)
Quarter: 2011Q1

REPORT INFORMATION
  Report Type: 
  Country: None (occurrence: None)
  Receive Date: 20110214
  Receipt Date: 20110131
  Transmission Date: 20110831
  Serious: Yes (Hospitalization)
  Sender: FDA-Public Use
  Company Number: GB-JNJFOC-20110103702

PATIENT
  Age: 68 Year
  Sex: Female

DRUGS (2)
  1. PARACETAMOL [Suspect]
     Indication: PRODUCT USED FOR UNKNOWN INDICATION
  2. PARACETAMOL [Suspect]

REACTIONS (9)
  - TROPONIN T INCREASED [None]
  - INTENTIONAL OVERDOSE [None]
  - MYOCARDIAL INFARCTION [None]
  - ELECTROCARDIOGRAM ST SEGMENT ELEVATION [None]
  - HYPOKINESIA [None]
  - DRUG LEVEL INCREASED [None]
  - HYPOTENSION [None]
  - ELECTROCARDIOGRAM T WAVE INVERSION [None]
  - VENTRICULAR HYPOKINESIA [None]
